FAERS Safety Report 10337940 (Version 1)
Quarter: 2014Q3

REPORT INFORMATION
  Report Type: Spontaneous
  Country: US (occurrence: None)
  Receive Date: 20140723
  Receipt Date: 20140723
  Transmission Date: 20150326
  Serious: No
  Sender: FDA-Public Use
  Company Number: None

PATIENT

DRUGS (1)
  1. AMOXICILLIN. [Suspect]
     Active Substance: AMOXICILLIN
     Route: 048

REACTIONS (4)
  - Intercepted drug dispensing error [None]
  - Drug dispensing error [None]
  - Wrong technique in drug usage process [None]
  - Physical product label issue [None]
